FAERS Safety Report 15155636 (Version 2)
Quarter: 2018Q3

REPORT INFORMATION
  Report Type: Spontaneous
  Country: RO (occurrence: RO)
  Receive Date: 20180717
  Receipt Date: 20180820
  Transmission Date: 20181010
  Serious: Yes (Other)
  Sender: FDA-Public Use
  Company Number: RO-APOPHARMA USA, INC.-2018AP017088

PATIENT
  Age: 12 Year
  Sex: Female

DRUGS (8)
  1. ALKERAN [Suspect]
     Active Substance: MELPHALAN
     Indication: STEM CELL TRANSPLANT
     Dosage: UNK, UNKNOWN
     Route: 065
  2. CARMUSTINE [Suspect]
     Active Substance: CARMUSTINE
     Indication: STEM CELL TRANSPLANT
     Dosage: UNK, UNKNOWN
     Route: 065
  3. ETOPOSIDE. [Suspect]
     Active Substance: ETOPOSIDE
     Indication: SURGICAL PRECONDITIONING
  4. CITARABIN [Suspect]
     Active Substance: CYTARABINE
     Indication: SURGICAL PRECONDITIONING
  5. ALKERAN [Suspect]
     Active Substance: MELPHALAN
     Indication: SURGICAL PRECONDITIONING
  6. ETOPOSIDE. [Suspect]
     Active Substance: ETOPOSIDE
     Indication: STEM CELL TRANSPLANT
     Dosage: UNK, UNKNOWN
     Route: 065
  7. CITARABIN [Suspect]
     Active Substance: CYTARABINE
     Indication: STEM CELL TRANSPLANT
     Dosage: UNK, UNKNOWN
     Route: 065
  8. CARMUSTINE [Suspect]
     Active Substance: CARMUSTINE
     Indication: SURGICAL PRECONDITIONING

REACTIONS (1)
  - Autoimmune thyroiditis [Unknown]
